FAERS Safety Report 5904536-3 (Version None)
Quarter: 2008Q4

REPORT INFORMATION
  Report Type: 
  Country: None (occurrence: None)
  Receive Date: 20081001
  Receipt Date: 20080919
  Transmission Date: 20090506
  Serious: Yes (Hospitalization)
  Sender: FDA-Public Use
  Company Number: US-NOVOPROD-279604

PATIENT
  Age: 63 Year
  Sex: Male
  Weight: 94 kg

DRUGS (9)
  1. NOVOLOG [Suspect]
     Indication: DIABETES MELLITUS
     Dosage: 100 UNK, UNK
     Route: 058
  2. ACCUPRIL [Suspect]
     Dosage: UNK MG, QD
     Route: 048
  3. OMACOR                             /00931501/ [Suspect]
     Indication: DRUG USE FOR UNKNOWN INDICATION
     Dosage: 1000 MG, QID
     Route: 048
  4. COREG [Suspect]
     Indication: DRUG USE FOR UNKNOWN INDICATION
     Dosage: 12.5 MG, QD
  5. HUMALOG [Suspect]
     Indication: DRUG USE FOR UNKNOWN INDICATION
     Dosage: 25 MG, IN THE AM AND PM
     Route: 058
  6. HYDRALAZINE HCL [Suspect]
     Indication: DRUG USE FOR UNKNOWN INDICATION
     Dosage: 25 MG, TID
     Route: 048
  7. LEXAPRO [Suspect]
     Indication: DRUG USE FOR UNKNOWN INDICATION
     Dosage: 20 MG, QD
     Route: 048
  8. PRAVACHOL [Suspect]
     Indication: DRUG USE FOR UNKNOWN INDICATION
     Dosage: 40 MG, QD
     Route: 048
  9. ASPIRIN [Concomitant]
     Dosage: 81 MG, QD
     Route: 048

REACTIONS (2)
  - BRADYCARDIA [None]
  - HYPOGLYCAEMIC UNCONSCIOUSNESS [None]
